FAERS Safety Report 25110038 (Version 2)
Quarter: 2025Q2

REPORT INFORMATION
  Report Type: Report from Study
  Country: US (occurrence: US)
  Receive Date: 20250324
  Receipt Date: 20250418
  Transmission Date: 20250717
  Serious: Yes (Other)
  Sender: ALEXION PHARMACEUTICALS
  Company Number: US-AstraZeneca-CH-00831534A

PATIENT

DRUGS (1)
  1. ULTOMIRIS [Suspect]
     Active Substance: RAVULIZUMAB-CWVZ
     Indication: Neuromyelitis optica spectrum disorder
     Route: 065

REACTIONS (7)
  - Hypertension [Not Recovered/Not Resolved]
  - Fluid retention [Unknown]
  - Headache [Unknown]
  - Constipation [Unknown]
  - Pollakiuria [Unknown]
  - Fatigue [Unknown]
  - Therapeutic response shortened [Unknown]
